FAERS Safety Report 8771880 (Version 1)
Quarter: 2012Q4

REPORT INFORMATION
  Report Type: 
  Country: US (occurrence: US)
  Receive Date: 20120906
  Receipt Date: 20120906
  Transmission Date: 20130627
  Serious: Yes (Death, Other)
  Sender: FDA-Public Use
  Company Number: US-ELI_LILLY_AND_COMPANY-US201208009245

PATIENT
  Sex: Female

DRUGS (1)
  1. PROZAC [Suspect]

REACTIONS (2)
  - Completed suicide [Fatal]
  - Homicide [Not Recovered/Not Resolved]
